FAERS Safety Report 12405431 (Version 2)
Quarter: 2016Q2

REPORT INFORMATION
  Report Type: Report from Study
  Country: HU (occurrence: HU)
  Receive Date: 20160525
  Receipt Date: 20160603
  Transmission Date: 20160815
  Serious: Yes (Hospitalization)
  Sender: FDA-Public Use
  Company Number: HU-ABBVIE-16P-076-1621948-00

PATIENT
  Age: 77 Year
  Sex: Female

DRUGS (6)
  1. COVEREX AS KOMB [Concomitant]
     Indication: HYPERTENSION
     Route: 048
  2. FRONTIN [Concomitant]
     Active Substance: ALPRAZOLAM
     Indication: RELAXATION THERAPY
     Route: 048
  3. BISOPROLOL [Concomitant]
     Active Substance: BISOPROLOL
     Indication: HYPERTENSION
     Dosage: IN THE MORNING
     Route: 048
  4. CITADEP [Concomitant]
     Indication: DEPRESSION
     Dosage: 1 TABLET MORNING
     Route: 048
  5. HUMULIN N [Concomitant]
     Active Substance: INSULIN HUMAN
     Indication: DIABETES MELLITUS
     Dosage: 4 UNIT AT 9PM
     Route: 058
  6. DUODOPA [Suspect]
     Active Substance: CARBIDOPA\LEVODOPA
     Indication: PARKINSON^S DISEASE
     Dosage: MORNING DOSE:5.5ML; CONTINUOUS DOSE:1.9ML/H; EXTRA DOSE:1.3ML
     Route: 050
     Dates: start: 20150311

REACTIONS (9)
  - Mobility decreased [Recovered/Resolved]
  - Device dislocation [Recovered/Resolved]
  - Gastric disorder [Not Recovered/Not Resolved]
  - Depressed mood [Not Recovered/Not Resolved]
  - Nausea [Recovering/Resolving]
  - Drug effect decreased [Unknown]
  - Drug effect delayed [Unknown]
  - Mental disorder [Unknown]
  - Nausea [Not Recovered/Not Resolved]

NARRATIVE: CASE EVENT DATE: 201603
